FAERS Safety Report 6226487-X (Version None)
Quarter: 2009Q2

REPORT INFORMATION
  Report Type: 
  Country: None (occurrence: None)
  Receive Date: 20090612
  Receipt Date: 20090602
  Transmission Date: 20091009
  Serious: Yes (Other)
  Sender: FDA-Public Use
  Company Number: JP-PFIZER INC-2009223159

PATIENT
  Age: 59 Year

DRUGS (2)
  1. ZYVOX [Suspect]
     Dosage: 600 MG, 2X/DAY
     Route: 048
     Dates: start: 20090601
  2. BAKTAR [Concomitant]
     Route: 048

REACTIONS (4)
  - AGITATION [None]
  - INSOMNIA [None]
  - POLLAKIURIA [None]
  - POLYURIA [None]
